FAERS Safety Report 14506666 (Version 1)
Quarter: 2018Q1

REPORT INFORMATION
  Report Type: Spontaneous
  Country: TR (occurrence: TR)
  Receive Date: 20180208
  Receipt Date: 20180208
  Transmission Date: 20180509
  Serious: Yes (Death, Hospitalization, Other)
  Sender: FDA-Public Use
  Company Number: TR-TOLMAR, INC.-2018TR001417

PATIENT

DRUGS (5)
  1. ELIGARD [Suspect]
     Active Substance: LEUPROLIDE ACETATE
     Indication: METASTASES TO BONE
  2. IBANDRONIC ACID. [Concomitant]
     Active Substance: IBANDRONIC ACID
  3. TAMOXIFEN [Concomitant]
     Active Substance: TAMOXIFEN
  4. ELIGARD [Suspect]
     Active Substance: LEUPROLIDE ACETATE
     Indication: BREAST CANCER STAGE IV
     Dosage: UNK
     Route: 065
  5. TRASTUZUMAB. [Concomitant]
     Active Substance: TRASTUZUMAB

REACTIONS (4)
  - Death [Fatal]
  - Acute myelomonocytic leukaemia [Unknown]
  - Bone lesion [Unknown]
  - Off label use [Unknown]
